FAERS Safety Report 16862613 (Version 10)
Quarter: 2020Q4

REPORT INFORMATION
  Report Type: Spontaneous
  Country: US (occurrence: US)
  Receive Date: 20190927
  Receipt Date: 20201229
  Transmission Date: 20210113
  Serious: Yes (Hospitalization, Other)
  Sender: FDA-Public Use
  Company Number: US-MALLINCKRODT-T201905918

PATIENT
  Sex: Female

DRUGS (3)
  1. H.P. ACTHAR [Suspect]
     Active Substance: CORTICOTROPIN
     Indication: SYSTEMIC LUPUS ERYTHEMATOSUS
     Dosage: 80 UNITS (1 MILLILITER), 3 TIMES PER WEEK, AS DIRECTED
     Route: 058
     Dates: start: 201802
  2. MORPHINE [Suspect]
     Active Substance: MORPHINE
     Indication: PAIN
     Dosage: UNK
     Route: 065
  3. H.P. ACTHAR [Suspect]
     Active Substance: CORTICOTROPIN
     Dosage: UNK
     Route: 065

REACTIONS (37)
  - Bacterial infection [Unknown]
  - Nausea [Unknown]
  - Viral infection [Unknown]
  - Gastric infection [Unknown]
  - Eye contusion [Unknown]
  - Head injury [Not Recovered/Not Resolved]
  - Abdominal distension [Unknown]
  - Headache [Unknown]
  - Peripheral swelling [Unknown]
  - Injection site reaction [Not Recovered/Not Resolved]
  - Product storage error [Unknown]
  - Ovarian cancer recurrent [Unknown]
  - Migraine [Unknown]
  - Hypoaesthesia [Unknown]
  - Dyspnoea [Unknown]
  - Weight decreased [Unknown]
  - Systemic lupus erythematosus [Unknown]
  - Pyrexia [Unknown]
  - Erythema [Unknown]
  - Oropharyngeal pain [Unknown]
  - Abdominal pain upper [Not Recovered/Not Resolved]
  - Clostridium difficile infection [Unknown]
  - Thermal burn [Unknown]
  - Frostbite [Unknown]
  - Chest pain [Unknown]
  - Fall [Unknown]
  - Rash [Unknown]
  - Hyperhidrosis [Unknown]
  - Hypersensitivity [Unknown]
  - Contusion [Unknown]
  - Swelling [Not Recovered/Not Resolved]
  - Chills [Unknown]
  - Diarrhoea [Not Recovered/Not Resolved]
  - Flatulence [Unknown]
  - Epistaxis [Unknown]
  - Alopecia [Unknown]
  - Concussion [Not Recovered/Not Resolved]

NARRATIVE: CASE EVENT DATE: 2019
